FAERS Safety Report 13644669 (Version 1)
Quarter: 2017Q2

REPORT INFORMATION
  Report Type: Spontaneous
  Country: US (occurrence: US)
  Receive Date: 20170612
  Receipt Date: 20170612
  Transmission Date: 20170830
  Serious: No
  Sender: FDA-Public Use
  Company Number: US-ROCHE-1271721

PATIENT
  Sex: Female

DRUGS (4)
  1. PAXIL [Concomitant]
     Active Substance: PAROXETINE HYDROCHLORIDE
     Route: 048
  2. XELODA [Suspect]
     Active Substance: CAPECITABINE
     Dosage: DOSAGE: 2 WEEKS ON AND 2 WEEKS OFF
     Route: 065
     Dates: start: 2012
  3. XELODA [Suspect]
     Active Substance: CAPECITABINE
     Indication: BREAST CANCER STAGE IV
     Dosage: DOSAGE: 3 WEEKS ON AND 1 WEEK OFF,
     Route: 065
     Dates: start: 201203
  4. LUNESTA [Concomitant]
     Active Substance: ESZOPICLONE
     Route: 048
     Dates: end: 201201

REACTIONS (2)
  - Urinary tract infection [Unknown]
  - Palmar-plantar erythrodysaesthesia syndrome [Recovered/Resolved]

NARRATIVE: CASE EVENT DATE: 2012
